FAERS Safety Report 12325677 (Version 2)
Quarter: 2016Q2

REPORT INFORMATION
  Report Type: Spontaneous
  Country: US (occurrence: US)
  Receive Date: 20160503
  Receipt Date: 20160517
  Transmission Date: 20160815
  Serious: Yes (Hospitalization, Other)
  Sender: FDA-Public Use
  Company Number: US-AMGEN-USASP2016054063

PATIENT
  Age: 75 Year
  Sex: Female
  Weight: 60.77 kg

DRUGS (10)
  1. KEPPRA [Concomitant]
     Active Substance: LEVETIRACETAM
     Indication: SEIZURE
     Dosage: 1000 MG, BID
     Route: 048
  2. CALCIUM +VIT D [Concomitant]
     Active Substance: CALCIUM\VITAMIN D
     Dosage: 600 MG-200 IU
     Route: 048
  3. MELATONIN [Concomitant]
     Active Substance: MELATONIN
     Dosage: 1 MG, QD AT NIGHT
     Route: 048
  4. PROLIA [Suspect]
     Active Substance: DENOSUMAB
     Indication: OSTEOPOROSIS POSTMENOPAUSAL
     Dosage: 60 MG/ML, Q6MO
     Route: 058
     Dates: start: 20140422
  5. VITAMIN E [Concomitant]
     Active Substance: .ALPHA.-TOCOPHEROL
     Dosage: 400 IU, QD
     Route: 048
  6. OMEPRAZOLE. [Concomitant]
     Active Substance: OMEPRAZOLE
     Dosage: 40 MG, QD
     Route: 048
  7. MAGNESIUM OXIDE. [Concomitant]
     Active Substance: MAGNESIUM OXIDE
     Dosage: 250 MG, QD
     Route: 048
  8. VITAMIN D3 [Concomitant]
     Active Substance: CHOLECALCIFEROL
     Dosage: 2000 IU, QD
     Route: 048
  9. PROLIA [Suspect]
     Active Substance: DENOSUMAB
     Dosage: UNK
     Route: 058
  10. DONEPEZIL. [Concomitant]
     Active Substance: DONEPEZIL
     Dosage: 10 MG, QD
     Route: 048

REACTIONS (17)
  - Dementia [Unknown]
  - Hypothyroidism [Unknown]
  - Bone loss [Not Recovered/Not Resolved]
  - Osteonecrosis of jaw [Unknown]
  - Cholelithiasis [Unknown]
  - Osteomyelitis [Unknown]
  - Type V hyperlipidaemia [Unknown]
  - Sleep apnoea syndrome [Unknown]
  - Cellulitis [Unknown]
  - Memory impairment [Unknown]
  - Impaired fasting glucose [Unknown]
  - Depression [Recovered/Resolved]
  - Dental caries [Not Recovered/Not Resolved]
  - Essential hypertension [Recovered/Resolved]
  - Blood glucose increased [Unknown]
  - Tooth extraction [Unknown]
  - Insomnia [Unknown]

NARRATIVE: CASE EVENT DATE: 201604
